FAERS Safety Report 9989595 (Version 1)
Quarter: 2014Q1

REPORT INFORMATION
  Report Type: Report from Study
  Country: US (occurrence: US)
  Receive Date: 20140310
  Receipt Date: 20140310
  Transmission Date: 20141002
  Serious: No
  Sender: FDA-Public Use
  Company Number: US-ABBVIE-13P-163-1132102-00

PATIENT
  Age: 53 Year
  Sex: Female

DRUGS (1)
  1. HUMIRA [Suspect]
     Indication: MUCKLE-WELLS SYNDROME
     Route: 058
     Dates: start: 20130729

REACTIONS (3)
  - Off label use [Unknown]
  - Headache [Recovering/Resolving]
  - Injection site pain [Unknown]
